FAERS Safety Report 12805802 (Version 8)
Quarter: 2017Q3

REPORT INFORMATION
  Report Type: Report from Study
  Country: US (occurrence: US)
  Receive Date: 20161004
  Receipt Date: 20170823
  Transmission Date: 20171127
  Serious: Yes (Hospitalization, Other)
  Sender: FDA-Public Use
  Company Number: US-BAYER-2016-143474

PATIENT
  Age: 76 Year
  Sex: Male
  Weight: 88.44 kg

DRUGS (10)
  1. LETAIRIS [Concomitant]
     Active Substance: AMBRISENTAN
     Dosage: UNK
  2. ADEMPAS [Suspect]
     Active Substance: RIOCIGUAT
     Indication: PULMONARY ARTERIAL HYPERTENSION
     Dosage: 1 MG, TID
     Route: 048
  3. ADEMPAS [Suspect]
     Active Substance: RIOCIGUAT
     Indication: IDIOPATHIC PULMONARY FIBROSIS
     Dosage: 2 MG, TID
     Route: 048
     Dates: end: 20160921
  4. ADEMPAS [Suspect]
     Active Substance: RIOCIGUAT
     Indication: IDIOPATHIC PULMONARY FIBROSIS
     Dosage: 1 MG, TID
  5. ADEMPAS [Suspect]
     Active Substance: RIOCIGUAT
     Indication: IDIOPATHIC PULMONARY FIBROSIS
     Dosage: 1 MG, TID
     Route: 048
  6. ADEMPAS [Suspect]
     Active Substance: RIOCIGUAT
     Indication: IDIOPATHIC PULMONARY FIBROSIS
     Dosage: 0.5 MG, TID
     Route: 048
  7. ADEMPAS [Suspect]
     Active Substance: RIOCIGUAT
     Indication: IDIOPATHIC PULMONARY FIBROSIS
     Dosage: 1.5 MG, TID
     Route: 048
  8. ADEMPAS [Suspect]
     Active Substance: RIOCIGUAT
     Indication: IDIOPATHIC PULMONARY FIBROSIS
     Dosage: UNK
     Dates: start: 20161013
  9. ADEMPAS [Suspect]
     Active Substance: RIOCIGUAT
     Indication: IDIOPATHIC PULMONARY FIBROSIS
     Dosage: 1 MG, TID
     Route: 048
  10. ADEMPAS [Suspect]
     Active Substance: RIOCIGUAT
     Indication: IDIOPATHIC PULMONARY FIBROSIS
     Dosage: UNK
     Route: 048
     Dates: start: 20160601

REACTIONS (24)
  - Underdose [None]
  - Chills [Recovering/Resolving]
  - Rhinorrhoea [Unknown]
  - Hyposmia [Unknown]
  - Wrong technique in product usage process [Unknown]
  - Depressed level of consciousness [Recovering/Resolving]
  - Dysphonia [Unknown]
  - Oedema peripheral [Unknown]
  - Epistaxis [Unknown]
  - Dyspnoea [Not Recovered/Not Resolved]
  - Cough [Recovering/Resolving]
  - Ear discomfort [Unknown]
  - Peripheral swelling [Unknown]
  - Dyspnoea [Recovering/Resolving]
  - Oedema peripheral [Not Recovered/Not Resolved]
  - Abdominal pain [None]
  - Dyspnoea exertional [Unknown]
  - Gallbladder operation [None]
  - Insomnia [Unknown]
  - Off label use [None]
  - Swelling [Unknown]
  - Arrhythmia [Unknown]
  - Hypotension [None]
  - Fatigue [Recovering/Resolving]
